FAERS Safety Report 25846428 (Version 2)
Quarter: 2025Q4

REPORT INFORMATION
  Report Type: Spontaneous
  Country: AU (occurrence: AU)
  Receive Date: 20250925
  Receipt Date: 20251003
  Transmission Date: 20260117
  Serious: Yes (Other)
  Sender: PFIZER
  Company Number: AU-PFIZER INC-202500181477

PATIENT
  Age: 9 Decade
  Sex: Female

DRUGS (3)
  1. METHOTREXATE (METHOTREXATE SODIUM) [Suspect]
     Active Substance: METHOTREXATE SODIUM
     Dosage: 15 MG, WEEKLY
     Route: 048
  2. METHOTREXATE (METHOTREXATE SODIUM) [Suspect]
     Active Substance: METHOTREXATE SODIUM
     Dosage: 20 MG, WEEKLY
     Route: 048
  3. METHOTREXATE (METHOTREXATE SODIUM) [Suspect]
     Active Substance: METHOTREXATE SODIUM
     Dosage: 10 MG, WEEKLY
     Route: 048

REACTIONS (10)
  - Barrett^s oesophagus [Unknown]
  - Skeletal injury [Unknown]
  - Paralysis [Unknown]
  - Eye disorder [Unknown]
  - Bone disorder [Unknown]
  - Eczema [Unknown]
  - Abdominal pain upper [Unknown]
  - Headache [Unknown]
  - Lung disorder [Unknown]
  - Malaise [Unknown]

NARRATIVE: CASE EVENT DATE: 20250901
